FAERS Safety Report 4822205-8 (Version None)
Quarter: 2005Q4

REPORT INFORMATION
  Report Type: 
  Country: None (occurrence: None)
  Receive Date: 20051103
  Receipt Date: 20051021
  Transmission Date: 20060501
  Serious: Yes (Death, Hospitalization, Other)
  Sender: FDA-Public Use
  Company Number: 2005-DE-04406GD

PATIENT
  Age: 49 Year
  Sex: Female

DRUGS (6)
  1. MORPHINE SULFATE [Suspect]
     Indication: PAIN
     Dosage: VERY HIGH DOSES
  2. LORAZEPAM [Suspect]
     Indication: PAIN
  3. HYDROMORPHONE HCL [Suspect]
     Indication: PAIN
     Dosage: 40 MG/H WITH FREQUENT BOLUSES
  4. CELECOXIB (CELECOXIB) [Suspect]
  5. AMITRIPTYLINE HCL [Suspect]
     Indication: PAIN
  6. OXYCODONE HCL [Suspect]
     Indication: PAIN

REACTIONS (10)
  - ADVERSE EVENT [None]
  - BREAST CANCER METASTATIC [None]
  - CONDITION AGGRAVATED [None]
  - DISEASE PROGRESSION [None]
  - DRUG INEFFECTIVE [None]
  - EMOTIONAL DISTRESS [None]
  - INADEQUATE ANALGESIA [None]
  - LOSS OF CONSCIOUSNESS [None]
  - MYOCLONUS [None]
  - PAIN [None]
